FAERS Safety Report 10594690 (Version 5)
Quarter: 2015Q2

REPORT INFORMATION
  Report Type: Report from Study
  Country: TR (occurrence: TR)
  Receive Date: 20141120
  Receipt Date: 20150528
  Transmission Date: 20150821
  Serious: Yes (Hospitalization)
  Sender: FDA-Public Use
  Company Number: TR-ABBVIE-14K-161-1309617-00

PATIENT
  Age: 46 Year
  Sex: Female
  Weight: 79 kg

DRUGS (1)
  1. HUMIRA [Suspect]
     Active Substance: ADALIMUMAB
     Indication: ANKYLOSING SPONDYLITIS
     Route: 058
     Dates: start: 20140719, end: 20141110

REACTIONS (2)
  - Dizziness [Recovered/Resolved]
  - Multiple sclerosis [Recovering/Resolving]

NARRATIVE: CASE EVENT DATE: 20141109
